FAERS Safety Report 18317244 (Version 1)
Quarter: 2020Q3

REPORT INFORMATION
  Report Type: Report from Study
  Country: None (occurrence: US)
  Receive Date: 20200928
  Receipt Date: 20200928
  Transmission Date: 20201103
  Serious: Yes (Other)
  Sender: FDA-Public Use
  Company Number: US-ABBVIE-20K-163-3479917-00

PATIENT
  Sex: Female

DRUGS (3)
  1. HUMIRA [Suspect]
     Active Substance: ADALIMUMAB
     Indication: PSORIATIC ARTHROPATHY
     Route: 058
  2. HUMIRA [Suspect]
     Active Substance: ADALIMUMAB
     Indication: PSORIASIS
  3. HUMIRA [Suspect]
     Active Substance: ADALIMUMAB
     Indication: COLITIS ULCERATIVE

REACTIONS (8)
  - Back pain [Recovering/Resolving]
  - Abdominal pain upper [Unknown]
  - Immunodeficiency [Not Recovered/Not Resolved]
  - Ulcer [Unknown]
  - Neck pain [Recovering/Resolving]
  - Chronic obstructive pulmonary disease [Unknown]
  - Barrett^s oesophagus [Recovering/Resolving]
  - Hypertension [Unknown]
